FAERS Safety Report 18522216 (Version 1)
Quarter: 2020Q4

REPORT INFORMATION
  Report Type: Report from Study
  Country: US (occurrence: US)
  Receive Date: 20201119
  Receipt Date: 20201119
  Transmission Date: 20210114
  Serious: Yes (Other)
  Sender: FDA-Public Use
  Company Number: US-MYLANLABS-2020M1095452

PATIENT
  Age: 49 Year
  Sex: Female

DRUGS (1)
  1. EVEROLIMUS. [Suspect]
     Active Substance: EVEROLIMUS
     Indication: NEOPLASM OF THYMUS
     Dosage: 7.5 MILLIGRAM, QD
     Route: 048

REACTIONS (2)
  - Mucosal inflammation [Unknown]
  - Pneumonia [Unknown]
